FAERS Safety Report 7888493-9 (Version None)
Quarter: 2011Q4

REPORT INFORMATION
  Report Type: 
  Country: None (occurrence: None)
  Receive Date: 20111103
  Receipt Date: 20111020
  Transmission Date: 20120403
  Serious: Yes (Death, Hospitalization, Other)
  Sender: FDA-Public Use
  Company Number: FR-ROCHE-1006710

PATIENT
  Sex: Female

DRUGS (1)
  1. ALTEPLASE [Suspect]
     Indication: THROMBOLYSIS
     Dosage: FREQUENCY: ONCE
     Dates: start: 20110729, end: 20110729

REACTIONS (9)
  - EPISTAXIS [None]
  - HAEMORRHAGE [None]
  - HAEMOGLOBIN DECREASED [None]
  - TONGUE HAEMORRHAGE [None]
  - TACHYCARDIA [None]
  - HYPOTENSION [None]
  - UPPER GASTROINTESTINAL HAEMORRHAGE [None]
  - HAEMATURIA [None]
  - FIBRINOLYSIS [None]
